FAERS Safety Report 23703069 (Version 2)
Quarter: 2024Q2

REPORT INFORMATION
  Report Type: Report from Study
  Country: US (occurrence: US)
  Receive Date: 20240403
  Receipt Date: 20240405
  Transmission Date: 20240716
  Serious: Yes (Death)
  Sender: FDA-Public Use
  Company Number: US-ABBVIE-5704181

PATIENT
  Sex: Male
  Weight: 79 kg

DRUGS (13)
  1. VENCLEXTA [Suspect]
     Active Substance: VENETOCLAX
     Indication: Acute myeloid leukaemia
     Dosage: DURATION TEXT: TAKE ONE TABLET BY MOUTH ON DAY ONE
     Route: 048
  2. VENCLEXTA [Suspect]
     Active Substance: VENETOCLAX
     Indication: Acute myeloid leukaemia
     Dosage: DURATION TEXT: TWO TABLETS ON DAY TWO
     Route: 048
  3. VENCLEXTA [Suspect]
     Active Substance: VENETOCLAX
     Indication: Acute myeloid leukaemia
     Dosage: DURATION TEXT: FOUR TABLETS BY MOUTH DAILY THEREAFTER
     Route: 048
  4. VENCLEXTA [Suspect]
     Active Substance: VENETOCLAX
     Indication: Acute myeloid leukaemia
     Dosage: DURATION TEXT: 1 TABLET DAILY WHEN DONE WITH 50MG TAB
     Route: 048
  5. VENCLEXTA [Suspect]
     Active Substance: VENETOCLAX
     Indication: Acute myeloid leukaemia
     Dosage: FORM STRENGTH: 100 MG
     Route: 048
  6. VENCLEXTA [Suspect]
     Active Substance: VENETOCLAX
     Indication: Acute myeloid leukaemia
     Route: 048
  7. VENCLEXTA [Suspect]
     Active Substance: VENETOCLAX
     Indication: Acute myeloid leukaemia
     Dosage: DURATION TEXT: 1 TABLET DAILY WHEN DONE 50MG TAB
     Route: 048
     Dates: start: 20211015, end: 20211021
  8. EXCEDRIN [Concomitant]
     Active Substance: ACETAMINOPHEN\ASPIRIN\CAFFEINE
     Indication: Product used for unknown indication
     Dosage: FREQUENCY TEXT: AS NEEDED
     Route: 048
  9. CYANOCOBALAMIN [Concomitant]
     Active Substance: CYANOCOBALAMIN
     Indication: Product used for unknown indication
     Dosage: FORM STRENGTH: 1000 MG?DURATION TEXT: PATIENT NOT TAKING, REPORT ON 21 OCT 2021
     Route: 048
  10. ZANTAC [Concomitant]
     Active Substance: RANITIDINE HYDROCHLORIDE
     Indication: Product used for unknown indication
     Route: 048
  11. PRILOSEC [Concomitant]
     Active Substance: OMEPRAZOLE MAGNESIUM
     Indication: Product used for unknown indication
     Route: 048
  12. FOLIC ACID [Concomitant]
     Active Substance: FOLIC ACID
     Indication: Product used for unknown indication
     Dosage: FORM STRENGTH: 1 MG?DURATION TEXT: PATIENT NOT TAKING, REPORT ON 21 OCT 2021
     Route: 048
  13. XOSPATA [Concomitant]
     Active Substance: GILTERITINIB
     Indication: Product used for unknown indication
     Dosage: FORM STRENGTH: 40 MG
     Route: 048

REACTIONS (1)
  - Death [Fatal]
